FAERS Safety Report 7621537-8 (Version None)
Quarter: 2011Q3

REPORT INFORMATION
  Report Type: 
  Country: None (occurrence: None)
  Receive Date: 20110719
  Receipt Date: 20110718
  Transmission Date: 20111222
  Serious: Yes (Death, Congenital Anomaly, Other)
  Sender: FDA-Public Use
  Company Number: TW-ABBOTT-10P-153-0675921-00

PATIENT

DRUGS (1)
  1. REDUCTIL 15MG [Suspect]
     Indication: MATERNAL EXPOSURE DURING PREGNANCY
     Route: 064

REACTIONS (2)
  - PULMONARY MALFORMATION [None]
  - MATERNAL EXPOSURE DURING PREGNANCY [None]
